FAERS Safety Report 19966617 (Version 3)
Quarter: 2021Q4

REPORT INFORMATION
  Report Type: Spontaneous
  Country: US (occurrence: US)
  Receive Date: 20211018
  Receipt Date: 20211116
  Transmission Date: 20220303
  Serious: Yes (Death, Other)
  Sender: FDA-Public Use
  Company Number: US-SANOFI-00810566

PATIENT
  Age: 79 Year
  Sex: Male

DRUGS (1)
  1. JEVTANA [Suspect]
     Active Substance: CABAZITAXEL
     Dosage: 51 MG

REACTIONS (3)
  - Death [Fatal]
  - Liver function test increased [Unknown]
  - Fatigue [Unknown]

NARRATIVE: CASE EVENT DATE: 20211011
